FAERS Safety Report 4560717-5 (Version None)
Quarter: 2005Q1

REPORT INFORMATION
  Report Type: 
  Country: None (occurrence: None)
  Receive Date: 20050121
  Receipt Date: 20050113
  Transmission Date: 20050727
  Serious: Yes (Death)
  Sender: FDA-Public Use
  Company Number: 2005CG00115

PATIENT
  Age: 62 Year
  Sex: Male
  Weight: 56 kg

DRUGS (12)
  1. OMEPRAZOLE [Suspect]
     Indication: KLEBSIELLA INFECTION
     Dosage: 40 MG QD PO
     Route: 048
     Dates: start: 20041021
  2. OMEPRAZOLE [Suspect]
     Indication: PATHOGEN RESISTANCE
     Dosage: 40 MG QD PO
     Route: 048
     Dates: start: 20041021
  3. TRAMADOL HCL [Suspect]
     Dosage: 150 MG QD PO
     Route: 048
     Dates: start: 20041021
  4. CORTANCYL [Suspect]
     Dosage: 5 MG QD PO
     Route: 048
     Dates: start: 20041021
  5. ZYRTEC [Suspect]
     Dosage: 1 DF QD PO
     Route: 048
     Dates: start: 20041021
  6. PROGRAF [Suspect]
     Dosage: 2 MG QD PO
     Route: 048
     Dates: start: 20041021
  7. TIGECYCLINE [Suspect]
     Indication: NOSOCOMIAL INFECTION
     Dosage: 50 MG BID IV
     Route: 042
     Dates: start: 20041203, end: 20041208
  8. LOVENOX [Suspect]
     Dates: start: 20041021
  9. PRIMPERAN INJ [Suspect]
     Dates: start: 20041021
  10. ATARAX [Suspect]
     Dates: start: 20041021
  11. SECTRAL [Suspect]
     Dates: start: 20041021
  12. AMLODIPINE BESYLATE [Suspect]
     Dates: start: 20041021

REACTIONS (15)
  - ANGIOPATHY [None]
  - CHOLESTASIS [None]
  - COMA [None]
  - CONDITION AGGRAVATED [None]
  - CONVULSION [None]
  - DRUG TOXICITY [None]
  - EXTRAPYRAMIDAL DISORDER [None]
  - HEPATITIS [None]
  - METABOLIC ENCEPHALOPATHY [None]
  - NOSOCOMIAL INFECTION [None]
  - PATHOGEN RESISTANCE [None]
  - PNEUMONIA KLEBSIELLA [None]
  - RENAL FAILURE CHRONIC [None]
  - RETINOPATHY HYPERTENSIVE [None]
  - SEPSIS [None]
